FAERS Safety Report 5857175-7 (Version None)
Quarter: 2008Q3

REPORT INFORMATION
  Report Type: 
  Country: None (occurrence: None)
  Receive Date: 20080825
  Receipt Date: 20080820
  Transmission Date: 20090109
  Serious: Yes (Other)
  Sender: FDA-Public Use
  Company Number: PHEH2008US07319

PATIENT
  Sex: Female

DRUGS (2)
  1. ELIDEL [Suspect]
     Indication: ECZEMA
     Dosage: UNK
  2. PROTOPIC [Suspect]
     Indication: ECZEMA
     Dosage: UNK

REACTIONS (2)
  - INJURY [None]
  - LUNG NEOPLASM MALIGNANT [None]
